FAERS Safety Report 25466867 (Version 2)
Quarter: 2025Q3

REPORT INFORMATION
  Report Type: Spontaneous
  Country: EU (occurrence: EU)
  Receive Date: 20250623
  Receipt Date: 20250702
  Transmission Date: 20251020
  Serious: Yes (Life-Threatening, Hospitalization, Other)
  Sender: JUBILANT
  Company Number: None

PATIENT
  Sex: Female
  Weight: 4.9 kg

DRUGS (3)
  1. SILDENAFIL CITRATE [Suspect]
     Active Substance: SILDENAFIL CITRATE
     Indication: Pulmonary hypertension
     Dosage: 2 MG/KG, ONCE PER DAY
     Route: 065
  2. NITRIC OXIDE [Suspect]
     Active Substance: NITRIC OXIDE
     Indication: Pulmonary hypertension
  3. ILOPROST [Suspect]
     Active Substance: ILOPROST
     Indication: Pulmonary hypertension

REACTIONS (1)
  - Pulmonary oedema [Recovered/Resolved]
